FAERS Safety Report 25381055 (Version 2)
Quarter: 2025Q2

REPORT INFORMATION
  Report Type: Spontaneous
  Country: CO (occurrence: CO)
  Receive Date: 20250530
  Receipt Date: 20250611
  Transmission Date: 20250717
  Serious: Yes (Other)
  Sender: SANDOZ
  Company Number: CO-002147023-NVSC2025CO084845

PATIENT
  Age: 65 Year
  Sex: Female

DRUGS (10)
  1. FULVESTRANT [Suspect]
     Active Substance: FULVESTRANT
     Route: 042
  2. FULVESTRANT [Suspect]
     Active Substance: FULVESTRANT
     Route: 042
  3. FULVESTRANT [Suspect]
     Active Substance: FULVESTRANT
     Indication: Breast cancer
     Route: 065
     Dates: start: 202001
  4. FULVESTRANT [Suspect]
     Active Substance: FULVESTRANT
     Route: 065
  5. LETROZOLE [Suspect]
     Active Substance: LETROZOLE
     Indication: Hormone receptor positive HER2 negative breast cancer
     Dosage: 2.5 MG, Q24H
     Route: 065
     Dates: start: 202209, end: 202408
  6. ERYTHROPOIETIN [Concomitant]
     Active Substance: ERYTHROPOIETIN
     Indication: Breast cancer
     Route: 058
  7. IBANDRONIC ACID [Concomitant]
     Active Substance: IBANDRONIC ACID
     Dosage: 1 X 6 MG, Q24H
     Route: 058
  8. IBANDRONIC ACID [Concomitant]
     Active Substance: IBANDRONIC ACID
     Dosage: 6 MG, EVERY 3 MONTHS
     Route: 042
  9. IBANDRONIC ACID [Concomitant]
     Active Substance: IBANDRONIC ACID
     Indication: Breast cancer
     Route: 042
  10. PALBOCICLIB [Concomitant]
     Active Substance: PALBOCICLIB
     Indication: Product used for unknown indication
     Route: 065
     Dates: start: 202005

REACTIONS (14)
  - Metastases to bone [Unknown]
  - Breast cancer stage III [Unknown]
  - Pyelocaliectasis [Unknown]
  - Hepatic steatosis [Unknown]
  - Degenerative bone disease [Unknown]
  - Osteoarthritis [Unknown]
  - Skin hypertrophy [Unknown]
  - Seroma [Unknown]
  - Osteopenia [Unknown]
  - Hepatic cyst [Unknown]
  - Bone pain [Unknown]
  - Pain [Unknown]
  - Decreased appetite [Unknown]
  - Headache [Unknown]

NARRATIVE: CASE EVENT DATE: 20220921
